FAERS Safety Report 9377144 (Version 1)
Quarter: 2013Q3

REPORT INFORMATION
  Report Type: Spontaneous
  Country: US (occurrence: US)
  Receive Date: 20130701
  Receipt Date: 20130701
  Transmission Date: 20140515
  Serious: Yes (Hospitalization, Other)
  Sender: FDA-Public Use
  Company Number: US-GENZYME-FABR-1001760

PATIENT
  Age: 62 Year
  Sex: Male

DRUGS (18)
  1. FABRAZYME [Suspect]
     Indication: FABRY^S DISEASE
     Dosage: 90 MG, Q2W
     Route: 042
     Dates: start: 20030904, end: 20090930
  2. FABRAZYME [Suspect]
     Dosage: 45 MG, Q2W
     Route: 042
     Dates: start: 20091001
  3. FABRAZYME [Suspect]
     Dosage: 90 MG, Q4W
     Route: 042
     Dates: start: 20100505
  4. BENADRYL [Concomitant]
     Indication: PREMEDICATION
     Dosage: 50 MG, QD
     Route: 048
  5. ACETAMINOPHEN [Concomitant]
     Indication: PREMEDICATION
     Dosage: UNK
     Route: 065
  6. ADVIL [Concomitant]
     Indication: PREMEDICATION
     Dosage: 600 MG, QD
     Route: 048
  7. PREDNISONE [Concomitant]
     Indication: PREMEDICATION
     Dosage: 30 MG, UNK
     Route: 065
  8. PREDNISONE [Concomitant]
     Dosage: 20 MG, UNK
     Route: 065
  9. PREDNISONE [Concomitant]
     Dosage: 10 MG, UNK
     Route: 065
  10. ADVAIR [Concomitant]
     Indication: PRODUCT USED FOR UNKNOWN INDICATION
     Dosage: UNK
     Route: 065
  11. COENZYME Q10 [Concomitant]
     Indication: PRODUCT USED FOR UNKNOWN INDICATION
     Dosage: 10 MG, QD
     Route: 048
  12. CANDESARTAN [Concomitant]
     Indication: PROTEINURIA
     Dosage: UNK
     Route: 060
  13. MULTIVITAMIN AND MINERAL [Concomitant]
     Indication: PRODUCT USED FOR UNKNOWN INDICATION
     Dosage: UNK
     Route: 048
  14. NASONEX [Concomitant]
     Indication: PRODUCT USED FOR UNKNOWN INDICATION
     Dosage: 50 MCGX 2 SPRAYS, QD
     Route: 045
  15. SINGULAIR [Concomitant]
     Indication: BRONCHIAL HYPERREACTIVITY
     Dosage: 10 MG, QD
     Route: 048
  16. BENICAR [Concomitant]
     Indication: PRODUCT USED FOR UNKNOWN INDICATION
     Dosage: 20 MG, QD
     Route: 065
  17. POTASSIUM [Concomitant]
     Indication: PRODUCT USED FOR UNKNOWN INDICATION
     Dosage: UNK
     Route: 048
  18. ALBUTEROL [Concomitant]
     Indication: PRODUCT USED FOR UNKNOWN INDICATION
     Dosage: PRN
     Route: 065

REACTIONS (2)
  - Cerebrovascular accident [Recovered/Resolved]
  - Aneurysm [Unknown]
